FAERS Safety Report 4343618-7 (Version None)
Quarter: 2004Q2

REPORT INFORMATION
  Report Type: 
  Country: None (occurrence: None)
  Receive Date: 20040419
  Receipt Date: 20040406
  Transmission Date: 20050107
  Serious: Yes (Other)
  Sender: FDA-Public Use
  Company Number: 200403612

PATIENT
  Age: 51 Year
  Sex: Male

DRUGS (3)
  1. TYLENOL [Suspect]
     Dates: start: 20040331, end: 20040331
  2. BENADRYL [Suspect]
     Dates: start: 20040331, end: 20040331
  3. WINE [Suspect]

REACTIONS (2)
  - ALCOHOL USE [None]
  - LOSS OF CONSCIOUSNESS [None]
